FAERS Safety Report 25867587 (Version 1)
Quarter: 2025Q4

REPORT INFORMATION
  Report Type: Spontaneous
  Country: EU (occurrence: EU)
  Receive Date: 20251001
  Receipt Date: 20251001
  Transmission Date: 20260117
  Serious: Yes (Hospitalization)
  Sender: CHEPLAPHARM
  Company Number: None

PATIENT
  Age: 61 Year
  Sex: Male

DRUGS (6)
  1. CAPECITABINE [Suspect]
     Active Substance: CAPECITABINE
     Indication: Pancreatic carcinoma
     Dosage: 120 TABLETS, 1650 MG ORALLY TWICE DAILY?DAILY DOSE: 3300 MILLIGRAM
     Route: 048
     Dates: start: 20250814, end: 20250826
  2. CAPECITABINE [Suspect]
     Active Substance: CAPECITABINE
     Indication: Intraductal papillary mucinous neoplasm
     Dosage: 120 TABLETS, 1650 MG ORALLY TWICE DAILY?DAILY DOSE: 3300 MILLIGRAM
     Route: 048
     Dates: start: 20250814, end: 20250826
  3. GEMCITABINE [Suspect]
     Active Substance: GEMCITABINE
     Indication: Pancreatic carcinoma
     Dosage: SCHEDULED FOR 2014 MG INTRAVENOUSLY ON DAYS 1, 8, AND 15 OF EACH CYCLE. C1D1 ON 08/14 AND C1D8 ON...
     Route: 042
     Dates: start: 20250814, end: 20250821
  4. GEMCITABINE [Suspect]
     Active Substance: GEMCITABINE
     Indication: Intraductal papillary mucinous neoplasm
     Dosage: SCHEDULED FOR 2014 MG INTRAVENOUSLY ON DAYS 1, 8, AND 15 OF EACH CYCLE. C1D1 ON 08/14 AND C1D8 ON...
     Route: 042
     Dates: start: 20250814, end: 20250821
  5. FAMOTIDINE [Concomitant]
     Active Substance: FAMOTIDINE
  6. Fisiocrem [Concomitant]
     Indication: Pain in extremity

REACTIONS (4)
  - Pseudocellulitis [Recovering/Resolving]
  - Pancytopenia [Recovering/Resolving]
  - Proteus infection [Unknown]
  - Post inflammatory pigmentation change [Unknown]

NARRATIVE: CASE EVENT DATE: 20250801
